FAERS Safety Report 7983708-0 (Version None)
Quarter: 2011Q4

REPORT INFORMATION
  Report Type: 
  Country: None (occurrence: None)
  Receive Date: 20111215
  Receipt Date: 20111205
  Transmission Date: 20120403
  Serious: Yes (Death, Hospitalization)
  Sender: FDA-Public Use
  Company Number: PT-BAXTER-2011BH038538

PATIENT

DRUGS (10)
  1. EXTRANEAL [Suspect]
     Route: 033
     Dates: start: 20090925
  2. PHYSIOSOL IN PLASTIC CONTAINER [Suspect]
     Indication: PERITONEAL DIALYSIS
     Route: 033
     Dates: start: 20111001, end: 20111102
  3. PHYSIOSOL IN PLASTIC CONTAINER [Suspect]
     Route: 033
     Dates: start: 20111001, end: 20111102
  4. PHYSIOSOL IN PLASTIC CONTAINER [Suspect]
     Route: 033
     Dates: start: 20111001, end: 20111102
  5. EXTRANEAL [Suspect]
     Route: 033
     Dates: start: 20111001, end: 20111102
  6. EXTRANEAL [Suspect]
     Route: 033
     Dates: start: 20090925
  7. PHYSIOSOL IN PLASTIC CONTAINER [Suspect]
     Route: 033
     Dates: start: 20090925
  8. EXTRANEAL [Suspect]
     Indication: PERITONEAL DIALYSIS
     Route: 033
     Dates: start: 20111001, end: 20111102
  9. PHYSIOSOL IN PLASTIC CONTAINER [Suspect]
     Route: 033
     Dates: start: 20111001, end: 20111102
  10. PHYSIOSOL IN PLASTIC CONTAINER [Suspect]
     Route: 033
     Dates: start: 20090925

REACTIONS (4)
  - GANGRENE [None]
  - SEPTIC SHOCK [None]
  - PERITONITIS BACTERIAL [None]
  - MALNUTRITION [None]
